FAERS Safety Report 9011858 (Version 2)
Quarter: 2013Q1

REPORT INFORMATION
  Report Type: Spontaneous
  Country: ES (occurrence: ES)
  Receive Date: 20130113
  Receipt Date: 20130325
  Transmission Date: 20140127
  Serious: Yes (Hospitalization)
  Sender: FDA-Public Use
  Company Number: ES-ELI_LILLY_AND_COMPANY-ES201301002981

PATIENT
  Age: 81 Year
  Sex: Male

DRUGS (1)
  1. FORSTEO [Suspect]
     Indication: OSTEOPOROSIS
     Dosage: 20 UG, UNKNOWN
     Route: 058
     Dates: start: 200811

REACTIONS (5)
  - Cardiac disorder [Recovering/Resolving]
  - Lung disorder [Recovered/Resolved]
  - Cerebrovascular accident [Recovered/Resolved]
  - Mouth haemorrhage [Recovered/Resolved]
  - Faeces discoloured [Recovered/Resolved]
